FAERS Safety Report 25422188 (Version 1)
Quarter: 2025Q2

REPORT INFORMATION
  Report Type: Other
  Country: ES (occurrence: ES)
  Receive Date: 20250611
  Receipt Date: 20250611
  Transmission Date: 20250717
  Serious: Yes (Hospitalization)
  Sender: BIOCON
  Company Number: None

PATIENT

DRUGS (2)
  1. ADALIMUMAB [Interacting]
     Active Substance: ADALIMUMAB
     Indication: Crohn^s disease
     Route: 042
     Dates: start: 20250301, end: 20250316
  2. PIPERACILLIN SODIUM\TAZOBACTAM SODIUM [Interacting]
     Active Substance: PIPERACILLIN SODIUM\TAZOBACTAM SODIUM
     Indication: Psoas abscess
     Route: 042
     Dates: start: 20250326, end: 20250417

REACTIONS (2)
  - Neutropenia [Recovered/Resolved]
  - Psoas abscess [Recovered/Resolved]

NARRATIVE: CASE EVENT DATE: 20250327
